FAERS Safety Report 8079987-4 (Version None)
Quarter: 2012Q1

REPORT INFORMATION
  Report Type: 
  Country: None (occurrence: None)
  Receive Date: 20120128
  Receipt Date: 20110802
  Transmission Date: 20120608
  Serious: No
  Sender: FDA-Public Use
  Company Number: US-ABBOTT-11P-163-0843651-00

PATIENT
  Age: 42 Year
  Sex: Female

DRUGS (4)
  1. HUMIRA [Suspect]
     Indication: PSORIASIS
     Dates: start: 20110501
  2. METFFORMIN HYDROCHLORIDE [Concomitant]
     Indication: POLYCYSTIC OVARIES
  3. STEROID OINTMENT [Concomitant]
     Indication: PSORIASIS
     Dosage: 1 IN 1 D; ALT EVERY 4 WK WITH OTHER OINT
  4. VITAMIN D OINTMENT [Concomitant]
     Indication: PSORIASIS
     Dosage: 2 IN 1 D; ALT EVERY 4 WK WITH OTHER OINT

REACTIONS (2)
  - INJECTION SITE HAEMATOMA [None]
  - PSORIASIS [None]
